FAERS Safety Report 9340412 (Version 4)
Quarter: 2013Q2

REPORT INFORMATION
  Report Type: Spontaneous
  Country: FR (occurrence: FR)
  Receive Date: 20130610
  Receipt Date: 20130626
  Transmission Date: 20140414
  Serious: Yes (Other)
  Sender: FDA-Public Use
  Company Number: FR-ROCHE-1234219

PATIENT
  Age: 14 Year
  Sex: Female

DRUGS (7)
  1. XOLAIR [Suspect]
     Indication: ASTHMA
     Route: 058
     Dates: start: 20130522
  2. SINGULAIR [Concomitant]
  3. SYMBICORT [Concomitant]
  4. KESTINLYO [Concomitant]
  5. AVAMYS [Concomitant]
  6. OGASTORO [Concomitant]
  7. RANITIDINE [Concomitant]

REACTIONS (10)
  - Syncope [Recovered/Resolved]
  - Hypotension [Unknown]
  - Asthenia [Recovered/Resolved]
  - Fall [Unknown]
  - Vertigo positional [Recovered/Resolved]
  - Loss of consciousness [Recovered/Resolved]
  - Amnesia [Unknown]
  - Gait disturbance [Unknown]
  - Malaise [Unknown]
  - Somnolence [Recovered/Resolved]
